FAERS Safety Report 7668098-5 (Version None)
Quarter: 2011Q3

REPORT INFORMATION
  Report Type: 
  Country: None (occurrence: None)
  Receive Date: 20110808
  Receipt Date: 20110729
  Transmission Date: 20111222
  Serious: Yes (Other)
  Sender: FDA-Public Use
  Company Number: AU-JNJFOC-20110801164

PATIENT
  Sex: Female

DRUGS (2)
  1. TOPAMAX [Suspect]
     Indication: MIGRAINE PROPHYLAXIS
     Dosage: FOR LAST 2 YEARS (TREATMENT STOPPED 6 MONTHS AGO AND RECOMMENCED 4 MONTHS AGO)
     Route: 048
  2. ANTI DEPRESSANTS [Concomitant]
     Route: 065

REACTIONS (1)
  - BIPOLAR DISORDER [None]
